FAERS Safety Report 9045069 (Version 1)
Quarter: 2013Q1

REPORT INFORMATION
  Report Type: Spontaneous
  Country: IT (occurrence: IT)
  Receive Date: 20130130
  Receipt Date: 20130130
  Transmission Date: 20140127
  Serious: Yes (Hospitalization)
  Sender: FDA-Public Use
  Company Number: PHHY2013IT007764

PATIENT
  Age: 69 None
  Sex: Female

DRUGS (3)
  1. METFORMIN [Suspect]
     Indication: DIABETES MELLITUS
     Dosage: 2550 MG, DAILY
     Route: 048
     Dates: start: 20121217, end: 20130117
  2. TAVOR (LORAZEPAM) [Concomitant]
  3. ALLOPURINOL [Concomitant]

REACTIONS (3)
  - Renal failure [Unknown]
  - Metabolic acidosis [Unknown]
  - Dyspnoea [Unknown]
